FAERS Safety Report 25545907 (Version 1)
Quarter: 2025Q3

REPORT INFORMATION
  Report Type: Report from Study
  Country: GB (occurrence: GB)
  Receive Date: 20250712
  Receipt Date: 20250712
  Transmission Date: 20251020
  Serious: Yes (Hospitalization)
  Sender: CELLTRION
  Company Number: GB-CELLTRION INC.-2025GB022594

PATIENT

DRUGS (1)
  1. INFLIXIMAB-DYYB [Suspect]
     Active Substance: INFLIXIMAB-DYYB
     Indication: Colitis ulcerative
     Dosage: 2 X REMSIMA 120MG/1ML SOLUTION FOR INJECTION PRE-FILLED PENS INJECT ONE PRE-FILLED PEN EVERY TWO WEE
     Route: 058
     Dates: start: 202404

REACTIONS (3)
  - Proctalgia [Not Recovered/Not Resolved]
  - Product prescribing issue [Not Recovered/Not Resolved]
  - Therapy interrupted [Not Recovered/Not Resolved]
